FAERS Safety Report 5042565-5 (Version None)
Quarter: 2006Q2

REPORT INFORMATION
  Report Type: 
  Country: None (occurrence: None)
  Receive Date: 20060627
  Receipt Date: 20060613
  Transmission Date: 20061013
  Serious: Yes (Hospitalization)
  Sender: FDA-Public Use
  Company Number: 2006076037

PATIENT
  Age: 64 Year
  Sex: Male
  Weight: 68.1 kg

DRUGS (2)
  1. SUTENT [Suspect]
     Indication: RENAL CELL CARCINOMA STAGE UNSPECIFIED
     Dosage: 50 MG (50 MG, 1 IN 1 D), ORAL
     Route: 048
     Dates: start: 20060601
  2. DOMPERIDONE [Concomitant]

REACTIONS (4)
  - DIARRHOEA [None]
  - LETHARGY [None]
  - SKIN EXFOLIATION [None]
  - VOMITING [None]
